FAERS Safety Report 5815843-7 (Version None)
Quarter: 2008Q3

REPORT INFORMATION
  Report Type: 
  Country: None (occurrence: None)
  Receive Date: 20080721
  Receipt Date: 20080708
  Transmission Date: 20090109
  Serious: Yes (Hospitalization)
  Sender: FDA-Public Use
  Company Number: JP-JNJFOC-20080602043

PATIENT
  Sex: Female
  Weight: 42 kg

DRUGS (13)
  1. REMICADE [Suspect]
     Route: 042
  2. REMICADE [Suspect]
     Route: 042
  3. REMICADE [Suspect]
     Indication: RHEUMATOID ARTHRITIS
     Route: 042
  4. METHOTREXATE [Suspect]
     Route: 048
  5. METHOTREXATE [Suspect]
     Indication: RHEUMATOID ARTHRITIS
     Route: 048
  6. PREDNISOLONE [Suspect]
     Indication: RHEUMATOID ARTHRITIS
     Route: 048
  7. ALENDRONATE SODIUM [Concomitant]
     Indication: OSTEOPOROSIS
     Route: 048
  8. ISONIAZID [Concomitant]
     Indication: PULMONARY TUBERCULOSIS
     Route: 048
  9. PYDOXAL [Concomitant]
     Indication: VITAMIN B6 DEFICIENCY
     Route: 048
  10. HYPEN [Concomitant]
     Indication: RHEUMATOID ARTHRITIS
     Route: 048
  11. MUCOSTA [Concomitant]
     Indication: GASTRIC ULCER
     Route: 048
  12. OLMETEC [Concomitant]
     Indication: HYPERTENSION
     Route: 048
  13. COTRIMOXAZOLE [Concomitant]
     Indication: PROPHYLAXIS

REACTIONS (2)
  - PNEUMOCYSTIS JIROVECI INFECTION [None]
  - PNEUMONIA MYCOPLASMAL [None]
